FAERS Safety Report 7688186-7 (Version None)
Quarter: 2011Q3

REPORT INFORMATION
  Report Type: 
  Country: None (occurrence: None)
  Receive Date: 20110817
  Receipt Date: 20110501
  Transmission Date: 20111222
  Serious: No
  Sender: FDA-Public Use
  Company Number: US-GLAXOSMITHKLINE-A0926226A

PATIENT
  Age: 72 Year
  Sex: Male
  Weight: 72.7 kg

DRUGS (5)
  1. ASPIRIN [Concomitant]
     Dosage: 81MGD PER DAY
  2. SIMAVASTATIN [Concomitant]
     Dosage: 10MGD PER DAY
  3. VOTRIENT [Suspect]
     Dosage: 400MG PER DAY
     Route: 065
     Dates: start: 20110404
  4. RAMIPRIL [Concomitant]
     Dosage: 10MGD PER DAY
  5. METOPROLOL TARTRATE [Concomitant]
     Dosage: 25MGD PER DAY

REACTIONS (3)
  - DIARRHOEA [None]
  - BLOOD PRESSURE INCREASED [None]
  - DECREASED APPETITE [None]
